FAERS Safety Report 8342897-9 (Version None)
Quarter: 2012Q2

REPORT INFORMATION
  Report Type: 
  Country: None (occurrence: None)
  Receive Date: 20120508
  Receipt Date: 20120501
  Transmission Date: 20120825
  Serious: No
  Sender: FDA-Public Use
  Company Number: US-PFIZER INC-2012071411

PATIENT
  Sex: Male
  Weight: 85.714 kg

DRUGS (2)
  1. ADVIL COLD AND SINUS [Suspect]
     Indication: NASOPHARYNGITIS
     Dosage: 200/30 MG, EVERY 4 TO 6 HOURS A DAY
     Route: 048
     Dates: start: 20120319
  2. ADVIL COLD AND SINUS [Suspect]
     Indication: SINUSITIS

REACTIONS (1)
  - DRUG INEFFECTIVE [None]
